FAERS Safety Report 4758956-3 (Version None)
Quarter: 2005Q3

REPORT INFORMATION
  Report Type: 
  Country: None (occurrence: None)
  Receive Date: 20050826
  Receipt Date: 20050811
  Transmission Date: 20060218
  Serious: Yes (Other)
  Sender: FDA-Public Use
  Company Number: US015721

PATIENT
  Age: 61 Year
  Sex: Male

DRUGS (6)
  1. TRISENOX [Suspect]
     Indication: ACUTE PROMYELOCYTIC LEUKAEMIA
     Dosage: 9.3 MG QD INTRAVENOUS DRIP
     Route: 041
     Dates: start: 20050603, end: 20050722
  2. AMOXICILLIN AND CLAVULANATE POTASSIUM [Concomitant]
  3. ASCORBIC ACIDQ [Concomitant]
  4. CALCIUM PANTOTHENATE [Concomitant]
  5. DANAPAROID SODIUM [Concomitant]
  6. GABEXATE MESILATE [Concomitant]

REACTIONS (4)
  - CONDITION AGGRAVATED [None]
  - ELECTROCARDIOGRAM QT CORRECTED INTERVAL PROLONGED [None]
  - ELECTROCARDIOGRAM QT PROLONGED [None]
  - PANCYTOPENIA [None]
